FAERS Safety Report 8304020-6 (Version None)
Quarter: 2012Q2

REPORT INFORMATION
  Report Type: 
  Country: None (occurrence: None)
  Receive Date: 20120420
  Receipt Date: 20120420
  Transmission Date: 20120825
  Serious: No
  Sender: FDA-Public Use
  Company Number: None

PATIENT
  Sex: Female

DRUGS (1)
  1. VISINE TEARS DRY EYE RELIEF [Suspect]
     Indication: DRY EYE
     Dosage: 1 DROP BOTH EYES ONCE
     Dates: start: 20120414

REACTIONS (3)
  - PRODUCT QUALITY ISSUE [None]
  - EYE PAIN [None]
  - EYE IRRITATION [None]
